FAERS Safety Report 17439293 (Version 1)
Quarter: 2020Q1

REPORT INFORMATION
  Report Type: Spontaneous
  Country: CA (occurrence: CA)
  Receive Date: 20200220
  Receipt Date: 20200220
  Transmission Date: 20200409
  Serious: Yes (Hospitalization)
  Sender: FDA-Public Use
  Company Number: CA-TEVA-2020-CA-1186024

PATIENT
  Age: 17 Year
  Sex: Male
  Weight: 66 kg

DRUGS (13)
  1. HYDROCORTISONE. [Suspect]
     Active Substance: HYDROCORTISONE
     Indication: ACUTE LYMPHOCYTIC LEUKAEMIA
     Route: 037
  2. VINCRISTINE SULFATE. [Concomitant]
     Active Substance: VINCRISTINE SULFATE
  3. L-ASPARAGINASE [Concomitant]
     Active Substance: ASPARAGINASE
     Route: 030
  4. MACROGOL 3350 [Concomitant]
     Active Substance: POLYETHYLENE GLYCOL 3350
  5. METHYLPREDNISOLONE SODIUM SUCCINATE. [Suspect]
     Active Substance: METHYLPREDNISOLONE SODIUM SUCCINATE
     Indication: ACUTE LYMPHOCYTIC LEUKAEMIA
     Route: 042
  6. RANITIDINE. [Concomitant]
     Active Substance: RANITIDINE
  7. DEXRAZOXANE HYDROCHLORIDE. [Concomitant]
     Active Substance: DEXRAZOXANE HYDROCHLORIDE
     Route: 042
  8. CYTARABINE. [Concomitant]
     Active Substance: CYTARABINE
  9. METHOTREXATE. [Concomitant]
     Active Substance: METHOTREXATE
  10. DEXAMETHASONE ACETATE [Suspect]
     Active Substance: DEXAMETHASONE ACETATE
     Indication: ACUTE LYMPHOCYTIC LEUKAEMIA
     Dosage: 10 MILLIGRAM DAILY;
     Route: 048
  11. PREDNISONE. [Suspect]
     Active Substance: PREDNISONE
     Indication: PRODUCT USED FOR UNKNOWN INDICATION
     Dosage: 75 MILLIGRAM DAILY;
     Route: 048
  12. DIMENHYDRINATE. [Concomitant]
     Active Substance: DIMENHYDRINATE
  13. NYSTATIN. [Concomitant]
     Active Substance: NYSTATIN

REACTIONS (6)
  - Confusional state [Unknown]
  - Hallucination, auditory [Unknown]
  - Incoherent [Unknown]
  - Mania [Unknown]
  - Psychotic disorder [Unknown]
  - Vitamin B12 deficiency [Unknown]
